FAERS Safety Report 20594825 (Version 1)
Quarter: 2022Q1

REPORT INFORMATION
  Report Type: Spontaneous
  Country: US (occurrence: US)
  Receive Date: 20220315
  Receipt Date: 20220315
  Transmission Date: 20220423
  Serious: Yes (Other)
  Sender: FDA-Public Use
  Company Number: US-ROCHE-2694274

PATIENT
  Sex: Female

DRUGS (27)
  1. CLONAZEPAM [Suspect]
     Active Substance: CLONAZEPAM
     Indication: Product used for unknown indication
     Dosage: UNK
     Route: 065
  2. CELLCEPT [Suspect]
     Active Substance: MYCOPHENOLATE MOFETIL
     Indication: Rheumatoid arthritis
     Dosage: 1000 MG, BID (500MG TABLET)
     Route: 048
  3. CELLCEPT [Suspect]
     Active Substance: MYCOPHENOLATE MOFETIL
     Indication: Interstitial lung disease
     Dosage: 1000 MG, BID (500MG TABLET)
     Route: 048
  4. CELLCEPT [Suspect]
     Active Substance: MYCOPHENOLATE MOFETIL
     Indication: Psoriatic arthropathy
     Dosage: 1000 MG, BID (500MG TABLET)
     Route: 048
  5. CELLCEPT [Suspect]
     Active Substance: MYCOPHENOLATE MOFETIL
     Indication: Rheumatoid arthritis
     Dosage: 500 MG, BID (2 TABLETS BID)
     Route: 048
  6. CELLCEPT [Suspect]
     Active Substance: MYCOPHENOLATE MOFETIL
     Indication: Interstitial lung disease
     Dosage: 500 MG, BID (2 TABLETS BID)
     Route: 048
  7. CELLCEPT [Suspect]
     Active Substance: MYCOPHENOLATE MOFETIL
     Indication: Psoriatic arthropathy
     Dosage: 500 MG, BID (2 TABLETS BID)
     Route: 048
  8. CELLCEPT [Suspect]
     Active Substance: MYCOPHENOLATE MOFETIL
     Indication: Rheumatoid arthritis
     Dosage: UNK
     Route: 065
  9. CELLCEPT [Suspect]
     Active Substance: MYCOPHENOLATE MOFETIL
     Indication: Interstitial lung disease
     Dosage: UNK
     Route: 065
  10. CELLCEPT [Suspect]
     Active Substance: MYCOPHENOLATE MOFETIL
     Indication: Psoriatic arthropathy
     Dosage: UNK
     Route: 065
  11. PROVENTIL HFA [Concomitant]
     Active Substance: ALBUTEROL SULFATE
     Indication: Wheezing
     Dosage: 90 UG, Q6HR (90 MCG/ACTUATION, INHALE 2 PUFFS THROUGH MOUTH)
     Route: 055
  12. NORVASC [Concomitant]
     Active Substance: AMLODIPINE BESYLATE
     Dosage: 7.5 MG, DAILY
     Route: 048
  13. ASPIRIN [Concomitant]
     Active Substance: ASPIRIN
     Dosage: 81 MG, DAILY
     Route: 048
  14. LIPITOR [Concomitant]
     Active Substance: ATORVASTATIN CALCIUM
     Dosage: 10 MG, DAILY
     Route: 048
  15. COREG [Concomitant]
     Active Substance: CARVEDILOL
     Dosage: 25 MG, BID (WITH MEALS)
     Route: 048
  16. CHOLECALCIFEROL [Concomitant]
     Active Substance: CHOLECALCIFEROL
     Dosage: UNK, DAILY (400 UNIT, TAKE 1 CAP)
     Route: 048
  17. CLONIDINE HYDROCHLORIDE [Concomitant]
     Active Substance: CLONIDINE HYDROCHLORIDE
     Dosage: 0.2 MG, TID
     Route: 048
  18. PEPCID [Concomitant]
     Active Substance: FAMOTIDINE
     Dosage: 40 MG, DAILY
     Route: 048
  19. FOLVITE [Concomitant]
     Active Substance: FOLIC ACID
     Dosage: 1000 UG, DAILY (TAKE 1 TAB 1000 MCG TOTAL)
     Route: 048
  20. APRESOLINE HYDROCHLORIDE [Concomitant]
     Active Substance: HYDRALAZINE HYDROCHLORIDE
     Dosage: 100 MG, TID
     Route: 048
  21. PLAQUENIL [Concomitant]
     Active Substance: HYDROXYCHLOROQUINE SULFATE
     Dosage: 1 DF, DAILY (1 TABLET)
     Route: 048
  22. ARAVA [Concomitant]
     Active Substance: LEFLUNOMIDE
     Dosage: 10 MG, DAILY, WITH FOOD
     Route: 048
  23. MAGNESIUM OXIDE [Concomitant]
     Active Substance: MAGNESIUM OXIDE
     Dosage: 400 MG, DAILY
     Route: 048
  24. SINGULAIR [Concomitant]
     Active Substance: MONTELUKAST SODIUM
     Dosage: 10 MG, DAILY
     Route: 048
  25. SODIUM CHLORIDE [Concomitant]
     Active Substance: SODIUM CHLORIDE
     Dosage: 1 G, BID
     Route: 048
  26. THIAMINE [Concomitant]
     Active Substance: THIAMINE
     Dosage: 100 MG
     Route: 048
  27. ORENCIA [Concomitant]
     Active Substance: ABATACEPT
     Dosage: 750 MG, DAY 0,14,28 THEN Q28 DAYS
     Route: 042

REACTIONS (3)
  - Pulmonary fibrosis [Unknown]
  - Dyspnoea [Unknown]
  - Drug hypersensitivity [Unknown]
